FAERS Safety Report 9735464 (Version 2)
Quarter: 2015Q3

REPORT INFORMATION
  Report Type: Spontaneous
  Country: US (occurrence: US)
  Receive Date: 20131206
  Receipt Date: 20150804
  Transmission Date: 20151125
  Serious: No
  Sender: FDA-Public Use
  Company Number: US-GILEAD-2009-0023260

PATIENT
  Age: 70 Year
  Sex: Male
  Weight: 87.09 kg

DRUGS (24)
  1. OXYGEN. [Concomitant]
     Active Substance: OXYGEN
  2. PREDNISONE. [Concomitant]
     Active Substance: PREDNISONE
  3. AZOPT [Concomitant]
     Active Substance: BRINZOLAMIDE
  4. ATENOLOL. [Concomitant]
     Active Substance: ATENOLOL
  5. RAPAMUNE [Concomitant]
     Active Substance: SIROLIMUS
  6. FUROSEMIDE. [Concomitant]
     Active Substance: FUROSEMIDE
  7. CARBAMAZEPINE. [Concomitant]
     Active Substance: CARBAMAZEPINE
  8. ZETIA [Concomitant]
     Active Substance: EZETIMIBE
  9. FLUOXETINE [Concomitant]
     Active Substance: FLUOXETINE\FLUOXETINE HYDROCHLORIDE
  10. CELLCEPT [Concomitant]
     Active Substance: MYCOPHENOLATE MOFETIL\MYCOPHENOLATE MOFETIL HYDROCHLORIDE
  11. NYSTATIN. [Concomitant]
     Active Substance: NYSTATIN
  12. VIAGRA [Concomitant]
     Active Substance: SILDENAFIL CITRATE
  13. VALTREX [Concomitant]
     Active Substance: VALACYCLOVIR HYDROCHLORIDE
  14. FOLIC ACID. [Concomitant]
     Active Substance: FOLIC ACID
  15. PROGRAF [Concomitant]
     Active Substance: TACROLIMUS\TACROLIMUS ANHYDROUS
  16. CENTRUM [Concomitant]
     Active Substance: VITAMINS
  17. CALTRATE [Concomitant]
     Active Substance: CALCIUM CARBONATE
  18. TYLENOL [Concomitant]
     Active Substance: ACETAMINOPHEN
  19. LIPITOR [Concomitant]
     Active Substance: ATORVASTATIN CALCIUM
  20. LETAIRIS [Suspect]
     Active Substance: AMBRISENTAN
     Indication: PULMONARY ARTERIAL HYPERTENSION
     Route: 048
     Dates: start: 20080728
  21. COUMADIN [Concomitant]
     Active Substance: WARFARIN SODIUM
  22. METHOTREXATE [Concomitant]
     Active Substance: METHOTREXATE
  23. ZITHROMAX [Concomitant]
     Active Substance: AZITHROMYCIN DIHYDRATE
  24. SEPTRA DS [Concomitant]
     Active Substance: SULFAMETHOXAZOLE\TRIMETHOPRIM

REACTIONS (3)
  - Headache [Unknown]
  - Nasal congestion [Unknown]
  - Oedema peripheral [Unknown]
